FAERS Safety Report 12609330 (Version 1)
Quarter: 2016Q3

REPORT INFORMATION
  Report Type: Report from Study
  Country: US (occurrence: US)
  Receive Date: 20160801
  Receipt Date: 20160801
  Transmission Date: 20161109
  Serious: Yes (Other)
  Sender: FDA-Public Use
  Company Number: US-AMGEN-USASL2016097259

PATIENT
  Age: 59 Year
  Sex: Female

DRUGS (2)
  1. METHOTREXATE. [Concomitant]
     Active Substance: METHOTREXATE
     Dosage: UNK
  2. ENBREL [Suspect]
     Active Substance: ETANERCEPT
     Indication: RHEUMATOID ARTHRITIS
     Dosage: 50 MG, QWK
     Route: 065
     Dates: start: 2009

REACTIONS (10)
  - Swelling [Not Recovered/Not Resolved]
  - Peripheral swelling [Unknown]
  - Pain [Not Recovered/Not Resolved]
  - Musculoskeletal pain [Unknown]
  - Mobility decreased [Unknown]
  - Arthralgia [Unknown]
  - Pain in extremity [Unknown]
  - Seizure [Unknown]
  - Joint swelling [Unknown]
  - Musculoskeletal stiffness [Unknown]

NARRATIVE: CASE EVENT DATE: 2016
